FAERS Safety Report 23236554 (Version 2)
Quarter: 2024Q1

REPORT INFORMATION
  Report Type: Spontaneous
  Country: HR (occurrence: HR)
  Receive Date: 20231128
  Receipt Date: 20240220
  Transmission Date: 20240409
  Serious: Yes (Other)
  Sender: FDA-Public Use
  Company Number: HR-002147023-NVSC2023HR251729

PATIENT
  Sex: Female

DRUGS (1)
  1. COSENTYX [Suspect]
     Active Substance: SECUKINUMAB
     Indication: Product used for unknown indication
     Dosage: 300 MG
     Route: 065
     Dates: end: 202311

REACTIONS (1)
  - Endometrial adenocarcinoma [Recovered/Resolved]
